FAERS Safety Report 6690223-3 (Version None)
Quarter: 2010Q2

REPORT INFORMATION
  Report Type: 
  Country: None (occurrence: None)
  Receive Date: 20100421
  Receipt Date: 20100413
  Transmission Date: 20101027
  Serious: Yes (Hospitalization)
  Sender: FDA-Public Use
  Company Number: JP-ROCHE-681829

PATIENT
  Sex: Female

DRUGS (5)
  1. TOCILIZUMAB [Suspect]
     Indication: RHEUMATOID ARTHRITIS
     Route: 041
     Dates: start: 20090819, end: 20090819
  2. TOCILIZUMAB [Suspect]
     Route: 041
     Dates: start: 20090916, end: 20090916
  3. TOCILIZUMAB [Suspect]
     Route: 041
     Dates: start: 20091014, end: 20091014
  4. TOCILIZUMAB [Suspect]
     Route: 041
     Dates: start: 20091118, end: 20091118
  5. PROGRAF [Concomitant]
     Dosage: DOSE FORM: PERORAL AGENT
     Route: 048
     Dates: start: 20090715, end: 20091117

REACTIONS (3)
  - OROPHARYNGEAL PAIN [None]
  - PLEURAL EFFUSION [None]
  - PLEURISY [None]
